FAERS Safety Report 19132318 (Version 2)
Quarter: 2021Q2

REPORT INFORMATION
  Report Type: Spontaneous
  Country: US (occurrence: US)
  Receive Date: 20210413
  Receipt Date: 20210629
  Transmission Date: 20210717
  Serious: Yes (Life-Threatening, Hospitalization, Disabling)
  Sender: FDA-Public Use
  Company Number: US-TEVA-2021-US-1898146

PATIENT
  Age: 7 Decade
  Sex: Female

DRUGS (14)
  1. FLUVOXAMINE [Suspect]
     Active Substance: FLUVOXAMINE
     Indication: PSYCHOTIC DISORDER
     Route: 065
  2. HALOPERIDOL. [Suspect]
     Active Substance: HALOPERIDOL
     Indication: PSYCHOTIC DISORDER
     Dosage: 10 MILLIGRAM DAILY;
     Route: 065
  3. MIRTAZAPINE. [Suspect]
     Active Substance: MIRTAZAPINE
     Indication: PSYCHOTIC DISORDER
     Route: 065
  4. AMANTADINE. [Suspect]
     Active Substance: AMANTADINE HYDROCHLORIDE
     Indication: NEUROLEPTIC MALIGNANT SYNDROME
     Route: 065
  5. CARBIDOPA/LEVODOPA [Suspect]
     Active Substance: CARBIDOPA\LEVODOPA
     Indication: NEUROLEPTIC MALIGNANT SYNDROME
     Route: 065
  6. LORAZEPAM. [Suspect]
     Active Substance: LORAZEPAM
     Route: 042
  7. DANTROLENE. [Suspect]
     Active Substance: DANTROLENE SODIUM
     Indication: NEUROLEPTIC MALIGNANT SYNDROME
     Dosage: LATER DOSE INCREASED
     Route: 065
  8. BROMOCRIPTINE [Concomitant]
     Active Substance: BROMOCRIPTINE
     Indication: NEUROLEPTIC MALIGNANT SYNDROME
     Route: 065
  9. ETOMIDATE. [Concomitant]
     Active Substance: ETOMIDATE
     Indication: ELECTROCONVULSIVE THERAPY
     Route: 065
  10. FLUMAZENIL. [Concomitant]
     Active Substance: FLUMAZENIL
     Route: 065
  11. LORAZEPAM. [Suspect]
     Active Substance: LORAZEPAM
     Indication: NEUROLEPTIC MALIGNANT SYNDROME
     Dosage: 11 MILLIGRAM DAILY;
     Route: 065
  12. FLUMAZENIL. [Concomitant]
     Active Substance: FLUMAZENIL
     Indication: ELECTROCONVULSIVE THERAPY
     Route: 065
  13. LORAZEPAM. [Suspect]
     Active Substance: LORAZEPAM
     Dosage: VIA NASOGASTRIC TUBE
     Route: 065
  14. ROCURONIUM [Concomitant]
     Active Substance: ROCURONIUM BROMIDE
     Indication: HYPERKALAEMIA
     Route: 065

REACTIONS (3)
  - Neuroleptic malignant syndrome [Recovering/Resolving]
  - Drug ineffective [Unknown]
  - Hypotension [Recovering/Resolving]
